FAERS Safety Report 4301552-2 (Version None)
Quarter: 2004Q1

REPORT INFORMATION
  Report Type: 
  Country: None (occurrence: None)
  Receive Date: 20040219
  Receipt Date: 20040204
  Transmission Date: 20041129
  Serious: Yes (Other)
  Sender: FDA-Public Use
  Company Number: 2004IM000202

PATIENT
  Age: 57 Year
  Sex: Female

DRUGS (2)
  1. ADVAFERON (A643_INTERFERON ALFACON-1) [Suspect]
     Indication: HEPATITIS C
     Dosage: 12 MU; QD, SUBCUTANEOUS
     Route: 058
     Dates: start: 20020212, end: 20020507
  2. DICLOFENAC SODIUM [Concomitant]

REACTIONS (1)
  - INTERSTITIAL LUNG DISEASE [None]
